FAERS Safety Report 12872977 (Version 2)
Quarter: 2017Q1

REPORT INFORMATION
  Report Type: Spontaneous
  Country: US (occurrence: US)
  Receive Date: 20161021
  Receipt Date: 20170201
  Transmission Date: 20170428
  Serious: No
  Sender: FDA-Public Use
  Company Number: US-BIOGEN-2016BI00307095

PATIENT
  Sex: Female

DRUGS (2)
  1. TECFIDERA [Suspect]
     Active Substance: DIMETHYL FUMARATE
     Indication: PRODUCT USED FOR UNKNOWN INDICATION
     Route: 065
  2. AMPYRA [Concomitant]
     Active Substance: DALFAMPRIDINE
     Indication: MULTIPLE SCLEROSIS
     Route: 048
     Dates: start: 20160803

REACTIONS (5)
  - White blood cell count decreased [Unknown]
  - Balance disorder [Unknown]
  - Muscular weakness [Recovered/Resolved]
  - Clumsiness [Recovered/Resolved]
  - Monocyte count increased [Unknown]

NARRATIVE: CASE EVENT DATE: 201609
